FAERS Safety Report 6277965-9 (Version None)
Quarter: 2009Q3

REPORT INFORMATION
  Report Type: 
  Country: None (occurrence: None)
  Receive Date: 20090722
  Receipt Date: 20090710
  Transmission Date: 20100115
  Serious: Yes (Disabling)
  Sender: FDA-Public Use
  Company Number: DK-PFIZER INC-2009240820

PATIENT
  Age: 65 Year

DRUGS (2)
  1. XALATAN [Suspect]
     Indication: GLAUCOMA
     Dosage: 50 UG, 1X/DAY
     Route: 047
     Dates: start: 20081106, end: 20090115
  2. AZOPT [Concomitant]
     Indication: GLAUCOMA
     Dosage: 10 MG, 2X/DAY
     Dates: start: 20081117

REACTIONS (1)
  - SCOTOMA [None]
